FAERS Safety Report 7394070-9 (Version None)
Quarter: 2011Q2

REPORT INFORMATION
  Report Type: 
  Country: None (occurrence: None)
  Receive Date: 20110405
  Receipt Date: 20110331
  Transmission Date: 20111010
  Serious: Yes (Hospitalization)
  Sender: FDA-Public Use
  Company Number: GB-BRISTOL-MYERS SQUIBB COMPANY-15557036

PATIENT
  Age: 68 Year
  Sex: Female

DRUGS (2)
  1. CLOZARIL [Suspect]
     Indication: SCHIZOPHRENIA
     Dosage: 27JUN08-18OCT10(844DAY),STOPPED ON 08MAR11
     Route: 048
     Dates: start: 20080627, end: 20110308
  2. ABILIFY [Suspect]
     Route: 065

REACTIONS (3)
  - PNEUMONIA [None]
  - DYSPHAGIA [None]
  - LOWER RESPIRATORY TRACT INFECTION [None]
